FAERS Safety Report 8499973-X (Version None)
Quarter: 2012Q3

REPORT INFORMATION
  Report Type: 
  Country: None (occurrence: None)
  Receive Date: 20120703
  Receipt Date: 20120703
  Transmission Date: 20120928
  Serious: No
  Sender: FDA-Public Use
  Company Number: None

PATIENT
  Sex: Female
  Weight: 67.8581 kg

DRUGS (2)
  1. LIPITOR [Suspect]
     Indication: HYPERCHOLESTEROLAEMIA
     Dosage: 10 MG QD PO
     Route: 048
     Dates: start: 20120301
  2. LIPITOR [Suspect]
     Indication: HYPERTRIGLYCERIDAEMIA
     Dosage: 10 MG QD PO
     Route: 048
     Dates: start: 20120301

REACTIONS (5)
  - PRODUCT SUBSTITUTION ISSUE [None]
  - FEELING ABNORMAL [None]
  - DIZZINESS [None]
  - FATIGUE [None]
  - DRUG INEFFECTIVE [None]
